FAERS Safety Report 21239309 (Version 1)
Quarter: 2022Q3

REPORT INFORMATION
  Report Type: Spontaneous
  Country: US (occurrence: None)
  Receive Date: 20220819
  Receipt Date: 20220819
  Transmission Date: 20221027
  Serious: No
  Sender: FDA-Public Use
  Company Number: None

PATIENT
  Age: 25 Year
  Sex: Female
  Weight: 65.25 kg

DRUGS (11)
  1. DEXTROAMPHET SACCHARAT, AMPHET ASPARTATE, DEXTROAMPHET SULFATE AND AMP [Suspect]
     Active Substance: AMPHETAMINE ASPARTATE\AMPHETAMINE SULFATE\DEXTROAMPHETAMINE SACCHARATE\DEXTROAMPHETAMINE SULFATE
     Indication: Attention deficit hyperactivity disorder
     Dosage: OTHER QUANTITY : 1 TABLET(S);?FREQUENCY : DAILY;?
     Route: 048
  2. LamoTRIgine 150mg tablet once daily (generic: Unichem labs [Concomitant]
  3. Adderall XR 25mg capsule once daily [Concomitant]
  4. Adderall IR 10mg [Concomitant]
  5. TRI-SPRINTEC [Concomitant]
  6. HYDROXYZINE PAMOATE [Concomitant]
     Active Substance: HYDROXYZINE PAMOATE
  7. Vitamin Bounty Pro-50 13 Probiotic Strains 50 billion Organisms [Concomitant]
  8. Veganly Vitamins: Vegan Multivitamin [Concomitant]
  9. Naturelo Premium Supplements Magnesium Glycinate Chelate [Concomitant]
  10. Spring Valley Melatonin [Concomitant]
  11. Spring Valley timed release vitamin B12 supplement 1000mcg tablet [Concomitant]

REACTIONS (8)
  - Product substitution issue [None]
  - Bruxism [None]
  - Dyspepsia [None]
  - Headache [None]
  - Somnolence [None]
  - Therapy change [None]
  - Drug ineffective [None]
  - Dissociation [None]
